FAERS Safety Report 5787617-7 (Version None)
Quarter: 2008Q2

REPORT INFORMATION
  Report Type: 
  Country: None (occurrence: None)
  Receive Date: 20080625
  Receipt Date: 20080613
  Transmission Date: 20081010
  Serious: Yes (Hospitalization)
  Sender: FDA-Public Use
  Company Number: DE-WYE-G01687008

PATIENT
  Age: 73 Year
  Sex: Female

DRUGS (7)
  1. VENLAFAXINE HCL [Suspect]
     Indication: DEPRESSION
     Route: 048
     Dates: start: 20080224, end: 20080227
  2. ACETYLCYSTEINE [Concomitant]
     Route: 048
     Dates: start: 20080221, end: 20080307
  3. EUNERPAN [Interacting]
     Route: 048
     Dates: start: 20080212, end: 20080310
  4. ZOPICLONE [Concomitant]
     Route: 048
     Dates: start: 20080224
  5. MADOPAR [Suspect]
     Route: 048
     Dates: start: 20080212
  6. SEROQUEL [Concomitant]
     Route: 048
     Dates: start: 20080214, end: 20080227
  7. SEROQUEL [Concomitant]
     Route: 048
     Dates: start: 20080228

REACTIONS (9)
  - AGGRESSION [None]
  - ANTIDEPRESSANT DRUG LEVEL INCREASED [None]
  - ANXIETY [None]
  - CONFUSIONAL STATE [None]
  - DELUSION [None]
  - DISORIENTATION [None]
  - DRUG INTERACTION [None]
  - PERSONALITY DISORDER [None]
  - RESTLESSNESS [None]
